FAERS Safety Report 9298107 (Version 1)
Quarter: 2013Q2

REPORT INFORMATION
  Report Type: Spontaneous
  Country: CA (occurrence: CA)
  Receive Date: 20130520
  Receipt Date: 20130520
  Transmission Date: 20140414
  Serious: Yes (Other)
  Sender: FDA-Public Use
  Company Number: CA-ELI_LILLY_AND_COMPANY-CA201305002666

PATIENT
  Sex: Male

DRUGS (3)
  1. HUMATROPE [Suspect]
     Indication: HYPOPITUITARISM
     Dosage: 6 MG, QD
     Route: 065
  2. HUMATROPE [Suspect]
     Dosage: 4 MG, QD
     Route: 065
  3. HUMATROPE [Suspect]
     Dosage: 2 MG, QD
     Route: 065

REACTIONS (5)
  - Osteonecrosis [Unknown]
  - General physical health deterioration [Unknown]
  - Pain [Unknown]
  - Insulin-like growth factor [Unknown]
  - Osteoarthritis [Unknown]
